FAERS Safety Report 14622048 (Version 1)
Quarter: 2018Q1

REPORT INFORMATION
  Report Type: Other
  Country: FR (occurrence: FR)
  Receive Date: 20180311
  Receipt Date: 20180311
  Transmission Date: 20180509
  Serious: Yes (Other)
  Sender: FDA-Public Use
  Company Number: FR-GLENMARK PHARMACEUTICALS-2018GMK033127

PATIENT

DRUGS (5)
  1. VINBLASTINE [Suspect]
     Active Substance: VINBLASTINE
     Indication: KAPOSI^S SARCOMA
     Dosage: UNK
     Route: 065
  2. IMIQUIMOD. [Suspect]
     Active Substance: IMIQUIMOD
     Indication: KAPOSI^S SARCOMA
     Dosage: UNK
     Route: 065
  3. DAUNORUBICIN [Suspect]
     Active Substance: DAUNORUBICIN
     Indication: KAPOSI^S SARCOMA
     Dosage: UNK
     Route: 065
  4. INTERFERON [Suspect]
     Active Substance: INTERFERON
     Indication: KAPOSI^S SARCOMA
     Dosage: UNK
     Route: 065
  5. PACLITAXEL. [Suspect]
     Active Substance: PACLITAXEL
     Indication: KAPOSI^S SARCOMA
     Dosage: UNK
     Route: 065

REACTIONS (1)
  - Kaposi^s sarcoma [Unknown]
